FAERS Safety Report 18259755 (Version 2)
Quarter: 2020Q3

REPORT INFORMATION
  Report Type: Spontaneous
  Country: US (occurrence: US)
  Receive Date: 20200912
  Receipt Date: 20200922
  Transmission Date: 20201103
  Serious: Yes (Other)
  Sender: FDA-Public Use
  Company Number: US-DRREDDYS-USA/USA/20/0126786

PATIENT
  Sex: Female

DRUGS (8)
  1. LAMOTRIGINE TABLETS [Suspect]
     Active Substance: LAMOTRIGINE
     Indication: PARTIAL SEIZURES
  2. DIVALPROEX SODIUM. [Suspect]
     Active Substance: DIVALPROEX SODIUM
     Indication: PARTIAL SEIZURES
     Route: 065
  3. LACOSAMIDE. [Suspect]
     Active Substance: LACOSAMIDE
     Indication: PARTIAL SEIZURES
  4. MECASERMIN [Suspect]
     Active Substance: MECASERMIN
     Indication: BEHAVIOUR DISORDER
  5. TOPIRAMATE. [Suspect]
     Active Substance: TOPIRAMATE
     Indication: PARTIAL SEIZURES
     Route: 065
  6. MECASERMIN [Suspect]
     Active Substance: MECASERMIN
     Indication: COGNITIVE DISORDER
  7. RUFINAMIDE [Suspect]
     Active Substance: RUFINAMIDE
     Indication: PARTIAL SEIZURES
     Route: 065
  8. CLONAZEPAM. [Suspect]
     Active Substance: CLONAZEPAM
     Indication: PARTIAL SEIZURES

REACTIONS (1)
  - Drug ineffective [Unknown]
